FAERS Safety Report 9311957 (Version 1)
Quarter: 2013Q2

REPORT INFORMATION
  Report Type: Report from Study
  Country: BR (occurrence: BR)
  Receive Date: 20130528
  Receipt Date: 20130528
  Transmission Date: 20140414
  Serious: Yes (Death, Hospitalization, Other)
  Sender: FDA-Public Use
  Company Number: PHHY2013BR053182

PATIENT
  Age: 64 Year
  Sex: Female
  Weight: 46 kg

DRUGS (1)
  1. DIOVAN HCT [Suspect]
     Dosage: (160 MG VALS AND 12.5 MG HYDR)

REACTIONS (8)
  - Ascites [Fatal]
  - Abdominal pain [Fatal]
  - Multi-organ failure [Fatal]
  - Septic shock [Fatal]
  - Sepsis [Fatal]
  - Peritonitis bacterial [Fatal]
  - Cholelithiasis [Recovered/Resolved]
  - Pancreatitis [Recovered/Resolved]
